FAERS Safety Report 23923398 (Version 3)
Quarter: 2024Q3

REPORT INFORMATION
  Report Type: Spontaneous
  Country: DE (occurrence: DE)
  Receive Date: 20240531
  Receipt Date: 20240708
  Transmission Date: 20241017
  Serious: Yes (Life-Threatening, Hospitalization, Other)
  Sender: HIKMA
  Company Number: None

PATIENT
  Age: 28 Year
  Sex: Female
  Weight: 108 kg

DRUGS (11)
  1. CLINDAMYCIN [Suspect]
     Active Substance: CLINDAMYCIN
     Indication: Antibiotic prophylaxis
     Dosage: 600 MILLIGRAM
     Route: 042
     Dates: start: 20240503, end: 20240503
  2. PROPOFOL [Suspect]
     Active Substance: PROPOFOL
     Indication: Antibiotic prophylaxis
     Dosage: UNK
     Route: 042
     Dates: start: 20240503, end: 20240503
  3. PROPOFOL [Suspect]
     Active Substance: PROPOFOL
     Indication: Anaesthesia procedure
  4. ROCURONIUM [Suspect]
     Active Substance: ROCURONIUM BROMIDE
     Dosage: NOT APPLICABLE (COMPANY^S SUSPECT PRODUCT NOT ADMINISTERED)
     Dates: start: 20240503, end: 20240503
  5. ROCURONIUM BROMIDE [Suspect]
     Active Substance: ROCURONIUM BROMIDE
     Indication: Anaesthesia procedure
     Dosage: UNK
     Route: 042
     Dates: start: 20240503, end: 20240503
  6. ROCURONIUM BROMIDE [Suspect]
     Active Substance: ROCURONIUM BROMIDE
     Indication: Antibiotic prophylaxis
  7. CAFEDRINE HYDROCHLORIDE\THEODRENALINE [Concomitant]
     Active Substance: CAFEDRINE HYDROCHLORIDE\THEODRENALINE
     Indication: Anaesthesia procedure
     Dosage: UNK
     Route: 065
  8. LIDOCAINE [Concomitant]
     Active Substance: LIDOCAINE
     Indication: Anaesthesia procedure
     Dosage: UNK
     Route: 065
  9. METOPROLOL [Concomitant]
     Active Substance: METOPROLOL
     Indication: Product used for unknown indication
     Dosage: 1 DOSAGE FORM, QD, 1-0-0
     Route: 065
  10. RAMIPRIL [Concomitant]
     Active Substance: RAMIPRIL
     Indication: Product used for unknown indication
     Dosage: 1 DOSAGE FORM, QD, 1-0-0
     Route: 065
     Dates: end: 20240404
  11. SUFENTANIL CITRATE [Concomitant]
     Active Substance: SUFENTANIL CITRATE
     Indication: Anaesthesia procedure
     Dosage: 30 MICROGRAM
     Route: 065

REACTIONS (9)
  - Swelling face [Recovering/Resolving]
  - Angioedema [Recovering/Resolving]
  - Dependence on respirator [Recovered/Resolved]
  - Anaphylactic reaction [Recovered/Resolved]
  - Application site erythema [Unknown]
  - Flushing [Unknown]
  - Bronchospasm [Unknown]
  - Face oedema [Unknown]
  - Blood pressure decreased [Recovered/Resolved]

NARRATIVE: CASE EVENT DATE: 20240503
